FAERS Safety Report 5605313-3 (Version None)
Quarter: 2008Q1

REPORT INFORMATION
  Report Type: 
  Country: None (occurrence: None)
  Receive Date: 20080124
  Receipt Date: 20080115
  Transmission Date: 20080703
  Serious: Yes (Death)
  Sender: FDA-Public Use
  Company Number: S08-USA-00176-01

PATIENT
  Age: 22 Year
  Sex: Female

DRUGS (5)
  1. LEXAPRO [Suspect]
     Indication: ANXIETY
     Dosage: 20 MG QD PO
     Route: 048
     Dates: end: 20071101
  2. LEXAPRO [Suspect]
     Indication: DEPRESSION
     Dosage: 20 MG QD PO
     Route: 048
     Dates: end: 20071101
  3. MORPHINE [Suspect]
     Dates: start: 20071101, end: 20071101
  4. CODEINE SUL TAB [Suspect]
     Dates: start: 20071101, end: 20071101
  5. DIAZEPAM [Suspect]
     Dates: start: 20071101, end: 20071101

REACTIONS (2)
  - COMPLETED SUICIDE [None]
  - MULTIPLE DRUG OVERDOSE [None]
